FAERS Safety Report 12840311 (Version 2)
Quarter: 2017Q1

REPORT INFORMATION
  Report Type: Report from Study
  Country: US (occurrence: US)
  Receive Date: 20161012
  Receipt Date: 20170111
  Transmission Date: 20170428
  Serious: No
  Sender: FDA-Public Use
  Company Number: US-RETROPHIN, INC.-2016RTN00020

PATIENT
  Age: 15 Year
  Sex: Male
  Weight: 41 kg

DRUGS (2)
  1. CHOLBAM [Suspect]
     Active Substance: CHOLIC ACID
     Dosage: 50 MG, 2X/DAY
     Route: 048
     Dates: start: 2016
  2. CHOLBAM [Suspect]
     Active Substance: CHOLIC ACID
     Indication: REFSUM^S DISEASE
     Dosage: 200 MG, 2X/DAY
     Route: 048
     Dates: start: 20160720, end: 20160826

REACTIONS (7)
  - Muscle spasms [Unknown]
  - Muscle contractions involuntary [Unknown]
  - Hypertension [Unknown]
  - Ataxia [Unknown]
  - Dysstasia [Unknown]
  - Abdominal pain [Unknown]
  - Tremor [Unknown]

NARRATIVE: CASE EVENT DATE: 2016
